FAERS Safety Report 21386956 (Version 1)
Quarter: 2022Q3

REPORT INFORMATION
  Report Type: Spontaneous
  Country: CA (occurrence: CA)
  Receive Date: 20220928
  Receipt Date: 20220928
  Transmission Date: 20221027
  Serious: Yes (Hospitalization, Other)
  Sender: FDA-Public Use
  Company Number: CA-SAMSUNG BIOEPIS-SB-2022-19058

PATIENT
  Age: 36 Year
  Sex: Male
  Weight: 89 kg

DRUGS (2)
  1. INFLIXIMAB [Suspect]
     Active Substance: INFLIXIMAB
     Indication: Crohn^s disease
     Route: 042
  2. DIVALPROEX SODIUM [Concomitant]
     Active Substance: DIVALPROEX SODIUM
     Indication: Product used for unknown indication
     Route: 065

REACTIONS (7)
  - Cellulitis [Not Recovered/Not Resolved]
  - Constipation [Not Recovered/Not Resolved]
  - Intestinal resection [Not Recovered/Not Resolved]
  - Laparotomy [Not Recovered/Not Resolved]
  - Weight increased [Not Recovered/Not Resolved]
  - Intentional product use issue [Not Recovered/Not Resolved]
  - Off label use [Not Recovered/Not Resolved]
